FAERS Safety Report 9350726 (Version 1)
Quarter: 2013Q2

REPORT INFORMATION
  Report Type: Spontaneous
  Country: AU (occurrence: AU)
  Receive Date: 20130617
  Receipt Date: 20130617
  Transmission Date: 20140414
  Serious: Yes (Other)
  Sender: FDA-Public Use
  Company Number: PHHY2013AU061031

PATIENT
  Age: 50 Year
  Sex: Female

DRUGS (11)
  1. ACLASTA [Suspect]
     Dosage: UNK
     Route: 042
  2. METHOTREXATE [Suspect]
     Dosage: UNK
  3. ACTEMRA [Suspect]
     Dosage: UNK
  4. CRESTOR [Suspect]
     Dosage: UNK
  5. MICARDIS [Suspect]
     Dosage: UNK
  6. NORVASC [Suspect]
     Dosage: UNK
  7. PREDNISOLONE [Suspect]
     Dosage: UNK
  8. PHYSIOTENS [Suspect]
     Dosage: UNK
  9. PLAQUENIL [Suspect]
     Dosage: UNK
  10. SALAZOPYRIN [Suspect]
     Dosage: UNK
  11. SERETIDE MDI [Suspect]
     Dosage: UNK

REACTIONS (4)
  - Osteitis [Unknown]
  - Gingival disorder [Unknown]
  - Sinusitis [Unknown]
  - Liver function test abnormal [Unknown]
